FAERS Safety Report 6456026-X (Version None)
Quarter: 2009Q4

REPORT INFORMATION
  Report Type: 
  Country: None (occurrence: None)
  Receive Date: 20091125
  Receipt Date: 20091113
  Transmission Date: 20100525
  Serious: Yes (Hospitalization)
  Sender: FDA-Public Use
  Company Number: DK-PFIZER INC-2009286226

PATIENT
  Sex: Male

DRUGS (4)
  1. METHOTREXATE SODIUM [Suspect]
     Indication: ACUTE FEBRILE NEUTROPHILIC DERMATOSIS
     Dosage: UNK
     Dates: start: 20060701
  2. PREDNISOLONE AND PREDNISOLONE STEAGLATE [Suspect]
     Dosage: UNK
     Dates: start: 20060210
  3. SALAZOPYRIN [Suspect]
     Indication: ACUTE FEBRILE NEUTROPHILIC DERMATOSIS
     Dosage: UNK
     Dates: start: 20060627
  4. REMICADE [Suspect]
     Indication: ACUTE FEBRILE NEUTROPHILIC DERMATOSIS
     Dosage: UNK
     Route: 042
     Dates: start: 20070101

REACTIONS (1)
  - DISEASE PROGRESSION [None]
